FAERS Safety Report 4668434-8 (Version None)
Quarter: 2005Q2

REPORT INFORMATION
  Report Type: 
  Country: None (occurrence: None)
  Receive Date: 20050519
  Receipt Date: 20050504
  Transmission Date: 20051028
  Serious: Yes (Other)
  Sender: FDA-Public Use
  Company Number: EM2005-0232

PATIENT
  Age: 55 Year
  Sex: Male

DRUGS (4)
  1. PROLEUKIN [Suspect]
     Indication: MALIGNANT MELANOMA
     Dosage: 0.72 MIU/KG, Q8H, IV BOLUS
     Route: 040
  2. SELECTED TUMOR-REACTIVE T CELLS [Concomitant]
  3. CYCLOPHOSPHAMIDE [Concomitant]
  4. FLUDARABINE PHOSPHATE [Concomitant]

REACTIONS (1)
  - IRIDOCYCLITIS [None]
